FAERS Safety Report 6694338-5 (Version None)
Quarter: 2010Q2

REPORT INFORMATION
  Report Type: 
  Country: None (occurrence: None)
  Receive Date: 20100423
  Receipt Date: 20100414
  Transmission Date: 20101027
  Serious: Yes (Other)
  Sender: FDA-Public Use
  Company Number: BR-PFIZER INC-2010036289

PATIENT
  Age: 55 Year
  Sex: Male
  Weight: 61 kg

DRUGS (6)
  1. XALATAN [Suspect]
     Indication: GLAUCOMA
     Dosage: UNK
     Route: 047
     Dates: end: 20100312
  2. XALATAN [Suspect]
     Indication: INTRAOCULAR PRESSURE INCREASED
  3. XALATAN [Suspect]
     Indication: GLAUCOMA
     Dosage: 2 GTT, 1X/DAY
     Route: 047
     Dates: start: 20100322
  4. XALATAN [Suspect]
     Indication: INTRAOCULAR PRESSURE INCREASED
  5. ALENDRONIC ACID [Concomitant]
     Indication: OSTEOPOROSIS
     Dosage: UNK
  6. CALCIUM PHOSPHATE W/COLECALCIFEROL [Concomitant]
     Indication: OSTEOPOROSIS
     Dosage: UNK

REACTIONS (6)
  - ABNORMAL SENSATION IN EYE [None]
  - DRUG INEFFECTIVE [None]
  - EYE IRRITATION [None]
  - EYELID IRRITATION [None]
  - INTRAOCULAR PRESSURE INCREASED [None]
  - VISUAL ACUITY REDUCED [None]
